FAERS Safety Report 4359534-0 (Version None)
Quarter: 2004Q2

REPORT INFORMATION
  Report Type: 
  Country: None (occurrence: None)
  Receive Date: 20040514
  Receipt Date: 20040514
  Transmission Date: 20050107
  Serious: Yes (Hospitalization)
  Sender: FDA-Public Use
  Company Number: None

PATIENT
  Age: 77 Year
  Sex: Male

DRUGS (6)
  1. ETODOLAC [Suspect]
     Indication: ARTHRITIS
     Dosage: 300 MG TID
     Dates: start: 20030801
  2. FOSINOPRIL SODIUM [Concomitant]
  3. ZOCOR [Concomitant]
  4. BACLOFEN [Concomitant]
  5. FOSINOPRIL SODIUM [Concomitant]
  6. TRAMADOL HCL [Concomitant]

REACTIONS (1)
  - GASTRIC ULCER [None]
